FAERS Safety Report 10971703 (Version 4)
Quarter: 2015Q2

REPORT INFORMATION
  Report Type: Spontaneous
  Country: IT (occurrence: IT)
  Receive Date: 20150331
  Receipt Date: 20150404
  Transmission Date: 20150821
  Serious: Yes (Other)
  Sender: FDA-Public Use
  Company Number: PHHY2015TR035563

PATIENT
  Age: 72 Year
  Sex: Male

DRUGS (4)
  1. MYCOPHENOLATE MOFETIL. [Suspect]
     Active Substance: MYCOPHENOLATE MOFETIL
     Indication: IMMUNOSUPPRESSION
  2. MYCOPHENOLATE MOFETIL. [Suspect]
     Active Substance: MYCOPHENOLATE MOFETIL
     Indication: RENAL TRANSPLANT
     Dosage: 1000 MG, QD
     Route: 065
  3. CICLOSPORIN [Suspect]
     Active Substance: CYCLOSPORINE
     Indication: IMMUNOSUPPRESSION
  4. CICLOSPORIN [Suspect]
     Active Substance: CYCLOSPORINE
     Indication: RENAL TRANSPLANT
     Dosage: 175 MG, QD
     Route: 065

REACTIONS (9)
  - Haemangioma of skin [Recovered/Resolved]
  - Skin lesion [Recovered/Resolved]
  - Arteriovenous malformation [Unknown]
  - Skin plaque [Recovered/Resolved]
  - Seborrhoeic keratosis [Recovered/Resolved]
  - Papule [Recovered/Resolved]
  - Bowen^s disease [Recovered/Resolved]
  - Erythema [Recovered/Resolved]
  - Skin atrophy [Recovered/Resolved]
